FAERS Safety Report 8012434-7 (Version None)
Quarter: 2011Q4

REPORT INFORMATION
  Report Type: 
  Country: None (occurrence: None)
  Receive Date: 20111228
  Receipt Date: 20111219
  Transmission Date: 20120403
  Serious: Yes (Hospitalization, Other)
  Sender: FDA-Public Use
  Company Number: US-RB-035789-11

PATIENT
  Age: 61 Year
  Sex: Male

DRUGS (2)
  1. SUBOXONE [Suspect]
     Indication: DRUG DEPENDENCE
     Route: 060
     Dates: start: 20101201, end: 20110601
  2. SUBOXONE [Suspect]
     Indication: DRUG DEPENDENCE
     Dosage: VARIOUS DOSE, SELF TAPERING
     Route: 060
     Dates: start: 20110601

REACTIONS (5)
  - UNDERDOSE [None]
  - NAUSEA [None]
  - WRONG TECHNIQUE IN DRUG USAGE PROCESS [None]
  - HEADACHE [None]
  - INTESTINAL OBSTRUCTION [None]
